FAERS Safety Report 5338386-6 (Version None)
Quarter: 2007Q2

REPORT INFORMATION
  Report Type: 
  Country: None (occurrence: None)
  Receive Date: 20070405
  Receipt Date: 20061114
  Transmission Date: 20071010
  Serious: No
  Sender: FDA-Public Use
  Company Number: US200611002726

PATIENT
  Age: 63 Year
  Sex: Female

DRUGS (4)
  1. CYMBALTA [Suspect]
     Indication: NERVOUSNESS
     Dosage: 30 MG, EACH EVENING
     Dates: start: 20061111
  2. PROTONIX [Concomitant]
  3. LISINOPRIL [Concomitant]
  4. CIPROFLOXACIN [Concomitant]

REACTIONS (4)
  - FATIGUE [None]
  - IMPAIRED DRIVING ABILITY [None]
  - SOMNOLENCE [None]
  - TREMOR [None]
